FAERS Safety Report 23100117 (Version 1)
Quarter: 2023Q4

REPORT INFORMATION
  Report Type: Spontaneous
  Country: US (occurrence: US)
  Receive Date: 20231024
  Receipt Date: 20231024
  Transmission Date: 20240110
  Serious: Yes (Death, Other)
  Sender: FDA-Public Use
  Company Number: US-GLAND PHARMA LIMITED-2023US003822

PATIENT

DRUGS (2)
  1. ETOMIDATE [Suspect]
     Active Substance: ETOMIDATE
     Indication: Endotracheal intubation
     Dosage: UNK
     Route: 065
  2. SUCCINYLCHOLINE CHLORIDE [Suspect]
     Active Substance: SUCCINYLCHOLINE CHLORIDE
     Indication: Endotracheal intubation
     Dosage: UNK
     Route: 065

REACTIONS (4)
  - Cardiac arrest [Fatal]
  - Hyperthermia malignant [Unknown]
  - Hypotension [Unknown]
  - Muscle rigidity [Unknown]
